FAERS Safety Report 5376109-5 (Version None)
Quarter: 2007Q3

REPORT INFORMATION
  Report Type: 
  Country: None (occurrence: None)
  Receive Date: 20070702
  Receipt Date: 20070620
  Transmission Date: 20080115
  Serious: Yes (Hospitalization)
  Sender: FDA-Public Use
  Company Number: B0460736A

PATIENT
  Age: 78 Year
  Sex: Male

DRUGS (20)
  1. PAROXETINE HCL [Suspect]
     Indication: DRUG USE FOR UNKNOWN INDICATION
     Route: 048
     Dates: start: 20070118, end: 20070122
  2. SKENAN [Suspect]
     Indication: DRUG USE FOR UNKNOWN INDICATION
     Route: 048
     Dates: start: 20070117, end: 20070123
  3. RIVOTRIL [Suspect]
     Indication: DRUG USE FOR UNKNOWN INDICATION
     Route: 048
     Dates: start: 20070117, end: 20070122
  4. ATHYMIL [Suspect]
     Indication: DRUG USE FOR UNKNOWN INDICATION
     Route: 048
     Dates: start: 20070119, end: 20070122
  5. XATRAL [Suspect]
     Indication: DRUG USE FOR UNKNOWN INDICATION
     Route: 048
     Dates: start: 20070119, end: 20070124
  6. INTRAVENOUS CONTRAST [Suspect]
     Dosage: 40ML SINGLE DOSE
     Route: 042
     Dates: start: 20070122, end: 20070122
  7. FORLAX [Concomitant]
     Indication: DRUG USE FOR UNKNOWN INDICATION
     Dates: start: 20070101
  8. SPASFON [Concomitant]
     Indication: DRUG USE FOR UNKNOWN INDICATION
     Dates: start: 20070101
  9. BUFLOMEDIL [Concomitant]
     Indication: DRUG USE FOR UNKNOWN INDICATION
  10. INIPOMP [Concomitant]
     Indication: DRUG USE FOR UNKNOWN INDICATION
     Dates: end: 20070101
  11. QUINAPRIL HYDROCHLORIDE AND HYDROCHLOROTHIAZDE [Concomitant]
     Indication: DRUG USE FOR UNKNOWN INDICATION
  12. MONOTILDIEM [Concomitant]
     Indication: DRUG USE FOR UNKNOWN INDICATION
  13. CO APROVEL [Concomitant]
     Indication: DRUG USE FOR UNKNOWN INDICATION
  14. CRESTOR [Concomitant]
     Indication: DRUG USE FOR UNKNOWN INDICATION
  15. ACETAMINOPHEN AND TRAMADOL HCL [Concomitant]
     Indication: DRUG USE FOR UNKNOWN INDICATION
     Dates: end: 20070101
  16. KETOPROFEN [Concomitant]
     Indication: DRUG USE FOR UNKNOWN INDICATION
     Dates: end: 20070101
  17. MINI-SINTROM [Concomitant]
     Indication: DRUG USE FOR UNKNOWN INDICATION
  18. RILMENIDINE [Concomitant]
     Indication: DRUG USE FOR UNKNOWN INDICATION
  19. PROZAC [Concomitant]
     Indication: DRUG USE FOR UNKNOWN INDICATION
     Dates: end: 20070101
  20. TOPALGIC (FRANCE) [Concomitant]
     Indication: DRUG USE FOR UNKNOWN INDICATION
     Dates: end: 20070101

REACTIONS (6)
  - BRADYPHRENIA [None]
  - DISORIENTATION [None]
  - MYOCARDIAL INFARCTION [None]
  - MYOCLONUS [None]
  - RENAL FAILURE ACUTE [None]
  - THROMBOSIS [None]
